FAERS Safety Report 12129918 (Version 1)
Quarter: 2016Q1

REPORT INFORMATION
  Report Type: Spontaneous
  Country: US (occurrence: US)
  Receive Date: 20160229
  Receipt Date: 20160229
  Transmission Date: 20160526
  Serious: No
  Sender: FDA-Public Use
  Company Number: US-ELI_LILLY_AND_COMPANY-US201602000769

PATIENT
  Sex: Male

DRUGS (4)
  1. LANTUS [Concomitant]
     Active Substance: INSULIN GLARGINE
  2. TRULICITY [Concomitant]
     Active Substance: DULAGLUTIDE
  3. HUMALOG [Suspect]
     Active Substance: INSULIN LISPRO
     Dosage: 25-34 U, PRN
     Route: 065
     Dates: start: 2006
  4. HUMALOG [Suspect]
     Active Substance: INSULIN LISPRO
     Indication: TYPE 2 DIABETES MELLITUS
     Dosage: 25-34 U, PRN
     Route: 065
     Dates: start: 2006

REACTIONS (1)
  - Incorrect dose administered [Unknown]
